FAERS Safety Report 10963997 (Version 2)
Quarter: 2015Q2

REPORT INFORMATION
  Report Type: Spontaneous
  Country: US (occurrence: US)
  Receive Date: 20150328
  Receipt Date: 20150524
  Transmission Date: 20150821
  Serious: No
  Sender: FDA-Public Use
  Company Number: US-JNJFOC-20100510239

PATIENT
  Sex: Female
  Weight: 79.38 kg

DRUGS (2)
  1. DURAGESIC [Suspect]
     Active Substance: FENTANYL
     Indication: MIGRAINE
     Dosage: NDC: 50458-0094-05
     Route: 062
  2. DURAGESIC [Suspect]
     Active Substance: FENTANYL
     Indication: BACK PAIN
     Dosage: NDC: 50458-0094-05
     Route: 062

REACTIONS (4)
  - Therapeutic response decreased [Not Recovered/Not Resolved]
  - Product quality issue [Unknown]
  - Drug tolerance [Not Recovered/Not Resolved]
  - Application site pruritus [Not Recovered/Not Resolved]
